FAERS Safety Report 11128874 (Version 2)
Quarter: 2015Q2

REPORT INFORMATION
  Report Type: Spontaneous
  Country: NL (occurrence: NL)
  Receive Date: 20150521
  Receipt Date: 20150521
  Transmission Date: 20150821
  Serious: Yes (Other)
  Sender: FDA-Public Use
  Company Number: PHHY2015NL056919

PATIENT
  Age: 54 Year
  Sex: Female

DRUGS (5)
  1. CARBAMAZEPINE. [Interacting]
     Active Substance: CARBAMAZEPINE
     Indication: EPILEPSY
     Route: 065
  2. FLUCLOXACILLIN [Concomitant]
     Active Substance: FLUCLOXACILLIN
  3. RIFAMPICIN [Suspect]
     Active Substance: RIFAMPIN
     Indication: PRODUCT USED FOR UNKNOWN INDICATION
     Route: 065
  4. RHOXAL-CLONAZEPAM [Interacting]
     Active Substance: CLONAZEPAM
     Indication: EPILEPSY
     Route: 065
  5. VALPROIC ACID. [Interacting]
     Active Substance: VALPROIC ACID
     Indication: EPILEPSY
     Route: 065

REACTIONS (2)
  - Seizure [Unknown]
  - Drug interaction [Unknown]
